FAERS Safety Report 6053037-3 (Version None)
Quarter: 2009Q1

REPORT INFORMATION
  Report Type: 
  Country: None (occurrence: None)
  Receive Date: 20090127
  Receipt Date: 20090116
  Transmission Date: 20090719
  Serious: Yes (Hospitalization)
  Sender: FDA-Public Use
  Company Number: FR-JNJFOC-20090100415

PATIENT
  Age: 38 Year
  Sex: Female

DRUGS (10)
  1. REMICADE [Suspect]
     Indication: CROHN'S DISEASE
     Dosage: UNSURE OF INFLIXIMAB START DATE
     Route: 042
  2. IMURAL [Suspect]
     Route: 048
  3. IMURAL [Suspect]
     Indication: CROHN'S DISEASE
     Route: 048
  4. ACETAMINOPHEN [Suspect]
     Route: 048
  5. ACETAMINOPHEN [Suspect]
     Indication: DRUG USE FOR UNKNOWN INDICATION
     Route: 048
  6. TERCIAN [Suspect]
     Indication: DRUG USE FOR UNKNOWN INDICATION
  7. DEROXAT [Suspect]
     Indication: DRUG USE FOR UNKNOWN INDICATION
     Route: 048
  8. THERALENE [Suspect]
     Indication: DRUG USE FOR UNKNOWN INDICATION
     Route: 048
  9. STILNOX [Concomitant]
  10. TRANXENE [Concomitant]

REACTIONS (8)
  - CHOLESTASIS [None]
  - CYTOLYTIC HEPATITIS [None]
  - FACTOR V DEFICIENCY [None]
  - HEPATIC FUNCTION ABNORMAL [None]
  - HYPERBILIRUBINAEMIA [None]
  - PANCYTOPENIA [None]
  - PROTHROMBIN LEVEL DECREASED [None]
  - SEPSIS [None]
